FAERS Safety Report 16032134 (Version 2)
Quarter: 2019Q1

REPORT INFORMATION
  Report Type: Spontaneous
  Country: CN (occurrence: CN)
  Receive Date: 20190304
  Receipt Date: 20190319
  Transmission Date: 20190418
  Serious: Yes (Other)
  Sender: FDA-Public Use
  Company Number: CN-GE HEALTHCARE LIFE SCIENCES-2019CSU001193

PATIENT

DRUGS (2)
  1. VISIPAQUE [Suspect]
     Active Substance: IODIXANOL
     Indication: ANGIOGRAM
     Dosage: 55 ML, SINGLE
     Route: 042
     Dates: start: 20190220, end: 20190220
  2. VISIPAQUE [Suspect]
     Active Substance: IODIXANOL
     Indication: PHYSICAL EXAMINATION
     Dosage: 35 ML, SINGLE
     Route: 042
     Dates: start: 20190220, end: 20190220

REACTIONS (1)
  - Drug hypersensitivity [Recovered/Resolved]

NARRATIVE: CASE EVENT DATE: 20190221
